FAERS Safety Report 6440363-9 (Version None)
Quarter: 2009Q4

REPORT INFORMATION
  Report Type: 
  Country: None (occurrence: None)
  Receive Date: 20091113
  Receipt Date: 20091102
  Transmission Date: 20100525
  Serious: Yes (Other)
  Sender: FDA-Public Use
  Company Number: PHEH2009US14956

PATIENT
  Sex: Female

DRUGS (1)
  1. VIVELLE-DOT [Suspect]
     Dosage: UNK
     Dates: start: 20040101

REACTIONS (2)
  - KNEE ARTHROPLASTY [None]
  - PROCEDURAL COMPLICATION [None]
